FAERS Safety Report 8330025-5 (Version None)
Quarter: 2012Q2

REPORT INFORMATION
  Report Type: 
  Country: None (occurrence: None)
  Receive Date: 20120502
  Receipt Date: 20091223
  Transmission Date: 20120825
  Serious: No
  Sender: FDA-Public Use
  Company Number: US-TEVA-2009029872

PATIENT
  Sex: Female
  Weight: 62.652 kg

DRUGS (4)
  1. NUVIGIL [Suspect]
     Indication: ASTHENIA
     Dosage: 150 MILLIGRAM;
     Route: 048
     Dates: start: 20091201
  2. NUVIGIL [Suspect]
     Indication: MENOPAUSE
  3. ESTRATEST [Concomitant]
     Indication: HORMONE REPLACEMENT THERAPY
  4. LEVOTHYROXINE SODIUM [Concomitant]
     Indication: THYROID FUNCTION TEST ABNORMAL
     Dosage: .75 MICROGRAM;
     Route: 048

REACTIONS (2)
  - WEIGHT DECREASED [None]
  - DECREASED APPETITE [None]
